FAERS Safety Report 9173401 (Version 1)
Quarter: 2013Q1

REPORT INFORMATION
  Report Type: Spontaneous
  Country: GB (occurrence: None)
  Receive Date: 20130314
  Receipt Date: 20130314
  Transmission Date: 20140127
  Serious: Yes (Other)
  Sender: FDA-Public Use
  Company Number: 2013-03832

PATIENT
  Age: 14 Year
  Sex: Female

DRUGS (1)
  1. PROPRANOLOL HYDROCHLORIDE [Suspect]
     Indication: MIGRAINE

REACTIONS (7)
  - Wrist fracture [None]
  - Fall [None]
  - Lower respiratory tract infection [None]
  - Head injury [None]
  - Dizziness [None]
  - Cough [None]
  - Dizziness [None]
